FAERS Safety Report 14418352 (Version 2)
Quarter: 2018Q1

REPORT INFORMATION
  Report Type: Not Available
  Country: US (occurrence: US)
  Receive Date: 20180122
  Receipt Date: 20180327
  Transmission Date: 20180509
  Serious: No
  Sender: FDA-Public Use
  Company Number: US-NEUROCRINE BIOSCIENCES INC.-2017NBI01808

PATIENT
  Age: 56 Year
  Sex: Female

DRUGS (9)
  1. METOPROLOL. [Concomitant]
     Active Substance: METOPROLOL
  2. GABAPENTIN. [Concomitant]
     Active Substance: GABAPENTIN
  3. CLONAZEPAM. [Concomitant]
     Active Substance: CLONAZEPAM
  4. CHLORZOXAZONE. [Concomitant]
     Active Substance: CHLORZOXAZONE
  5. LEVOTHYROXINE. [Concomitant]
     Active Substance: LEVOTHYROXINE
  6. HYDROCODONE BITARTRATE AND ACETAMINOPHEN [Concomitant]
     Active Substance: ACETAMINOPHEN\HYDROCODONE BITARTRATE
     Dosage: 7.5/325 MG TABLETS; 1 TO 2 TABLETS EVERY 6 TO 8 H
  7. OMEPRAZOLE. [Concomitant]
     Active Substance: OMEPRAZOLE
  8. LAMICTAL [Concomitant]
     Active Substance: LAMOTRIGINE
  9. INGREZZA [Suspect]
     Active Substance: VALBENAZINE
     Indication: TARDIVE DYSKINESIA
     Route: 048
     Dates: start: 20170627, end: 20171204

REACTIONS (4)
  - Hyperhidrosis [Recovered/Resolved]
  - Diarrhoea [Unknown]
  - Chills [Recovered/Resolved]
  - Impaired gastric emptying [Unknown]

NARRATIVE: CASE EVENT DATE: 20171106
